FAERS Safety Report 23096708 (Version 1)
Quarter: 2023Q4

REPORT INFORMATION
  Report Type: Spontaneous
  Country: IT (occurrence: IT)
  Receive Date: 20231023
  Receipt Date: 20231023
  Transmission Date: 20240110
  Serious: Yes (Death, Hospitalization)
  Sender: FDA-Public Use
  Company Number: IT-MYLANLABS-2023M1111394

PATIENT
  Age: 63 Year
  Sex: Male

DRUGS (9)
  1. CABAZITAXEL [Suspect]
     Active Substance: CABAZITAXEL
     Indication: Basal cell carcinoma
     Dosage: 20 MILLIGRAM/SQ. METER, Q21D, CYCLICAL
     Route: 065
     Dates: start: 202206
  2. CABAZITAXEL [Suspect]
     Active Substance: CABAZITAXEL
     Indication: Prostate cancer
  3. CARBOPLATIN [Suspect]
     Active Substance: CARBOPLATIN
     Indication: Basal cell carcinoma
     Dosage: UNK, AUC 5MG/ML/MIN; CYCLICAL
     Route: 065
     Dates: start: 202104, end: 202107
  4. CARBOPLATIN [Suspect]
     Active Substance: CARBOPLATIN
     Indication: Prostate cancer
     Dosage: UNK, AUC 4 MG/ML/MIN
     Route: 065
     Dates: start: 202206
  5. TRIPTORELIN ACETATE [Suspect]
     Active Substance: TRIPTORELIN ACETATE
     Indication: Basal cell carcinoma
     Dosage: 11.25 MILLIGRAM, Q3MONTHS, CYCLICAL
     Route: 058
     Dates: start: 202203
  6. TRIPTORELIN ACETATE [Suspect]
     Active Substance: TRIPTORELIN ACETATE
     Indication: Prostate cancer
  7. DOCETAXEL [Suspect]
     Active Substance: DOCETAXEL
     Indication: Basal cell carcinoma
     Dosage: 75 MILLIGRAM/SQ. METER, Q21D, CYCLICAL
     Route: 065
     Dates: start: 202203
  8. DOCETAXEL [Suspect]
     Active Substance: DOCETAXEL
     Indication: Prostate cancer
  9. PACLITAXEL [Concomitant]
     Active Substance: PACLITAXEL
     Indication: Neoplasm malignant
     Dosage: 175 MILLIGRAM/SQ. METER, Q21D, CYCLICAL
     Route: 065
     Dates: start: 202104, end: 202107

REACTIONS (2)
  - Drug ineffective for unapproved indication [Fatal]
  - Off label use [Fatal]

NARRATIVE: CASE EVENT DATE: 20220101
